FAERS Safety Report 8785787 (Version 3)
Quarter: 2013Q3

REPORT INFORMATION
  Report Type: Spontaneous
  Country: US (occurrence: US)
  Receive Date: 20120914
  Receipt Date: 20130912
  Transmission Date: 20140515
  Serious: Yes (Other)
  Sender: FDA-Public Use
  Company Number: US-UCBSA-065333

PATIENT
  Sex: Female

DRUGS (3)
  1. CIMZIA [Suspect]
     Indication: CROHN^S DISEASE
     Dates: start: 20090409, end: 2011
  2. CIMZIA [Suspect]
     Indication: CROHN^S DISEASE
     Dates: start: 201110, end: 2012
  3. CIMZIA [Suspect]
     Indication: CROHN^S DISEASE
     Dates: start: 20120813

REACTIONS (3)
  - Laceration [Not Recovered/Not Resolved]
  - Accident [Unknown]
  - Drug ineffective [Unknown]
